FAERS Safety Report 5771488-9 (Version None)
Quarter: 2008Q2

REPORT INFORMATION
  Report Type: 
  Country: None (occurrence: None)
  Receive Date: 20080612
  Receipt Date: 20080612
  Transmission Date: 20081010
  Serious: Yes (Other)
  Sender: FDA-Public Use
  Company Number: None

PATIENT
  Age: 48 Year
  Sex: Male
  Weight: 137.8935 kg

DRUGS (1)
  1. LAMISIL [Suspect]
     Indication: ONYCHOMYCOSIS
     Dosage: 250MG 1/DAY PO
     Route: 048
     Dates: start: 20080606, end: 20080608

REACTIONS (4)
  - BLISTER [None]
  - RASH GENERALISED [None]
  - RASH PUSTULAR [None]
  - SKIN EXFOLIATION [None]
